FAERS Safety Report 8042520-7 (Version None)
Quarter: 2012Q1

REPORT INFORMATION
  Report Type: 
  Country: None (occurrence: None)
  Receive Date: 20120112
  Receipt Date: 20120105
  Transmission Date: 20120608
  Serious: Yes (Other)
  Sender: FDA-Public Use
  Company Number: JP-ALEXION PHARMACEUTICALS INC.-A201101861

PATIENT
  Age: 28 Year
  Sex: Male

DRUGS (5)
  1. PRIMOBOLAN-DEPOT INJ [Concomitant]
     Dosage: 5 MG, BID
     Dates: start: 20110912, end: 20111016
  2. FAMOTIDINE [Concomitant]
     Dosage: 20 MG, QD
     Dates: start: 20110328
  3. PREDNISOLONE [Concomitant]
     Dosage: 5 MG, QD
     Dates: start: 20110307
  4. SOLIRIS [Suspect]
     Indication: PAROXYSMAL NOCTURNAL HAEMOGLOBINURIA
     Dosage: 600 MG, QW
     Route: 042
     Dates: start: 20111128, end: 20111212
  5. PRIMOBOLAN-DEPOT INJ [Concomitant]
     Dosage: 10 MG, BID
     Dates: start: 20111017

REACTIONS (1)
  - ANAPHYLACTOID REACTION [None]
